FAERS Safety Report 6902478-8 (Version None)
Quarter: 2010Q3

REPORT INFORMATION
  Report Type: 
  Country: None (occurrence: None)
  Receive Date: 20100802
  Receipt Date: 20100802
  Transmission Date: 20110219
  Serious: No
  Sender: FDA-Public Use
  Company Number: None

PATIENT
  Sex: Male
  Weight: 86.637 kg

DRUGS (1)
  1. TAMSULOSIN HCL [Suspect]
     Indication: HYPERTONIC BLADDER
     Dosage: 0.4 MG ONE Q DAY P.O.
     Route: 048

REACTIONS (2)
  - DRUG INEFFECTIVE [None]
  - PRODUCT SUBSTITUTION ISSUE [None]
